FAERS Safety Report 18763132 (Version 1)
Quarter: 2021Q1

REPORT INFORMATION
  Report Type: Spontaneous
  Country: US (occurrence: US)
  Receive Date: 20210120
  Receipt Date: 20210120
  Transmission Date: 20210419
  Serious: Yes (Hospitalization)
  Sender: FDA-Public Use
  Company Number: None

PATIENT
  Age: 60 Year
  Sex: Male
  Weight: 99 kg

DRUGS (2)
  1. PLENVU [Suspect]
     Active Substance: ASCORBIC ACID\POLYETHYLENE GLYCOL 3350\POTASSIUM CHLORIDE\SODIUM ASCORBATE\SODIUM CHLORIDE\SODIUM SULFATE
     Indication: COLONOSCOPY
     Dosage: ?          QUANTITY:3 46.26 G OF POWDER;OTHER FREQUENCY:55.65 G OF POWDER;OTHER ROUTE:MIXED WITH WATER?
     Dates: start: 20210119, end: 20210119
  2. ZOCOR [Concomitant]
     Active Substance: SIMVASTATIN

REACTIONS (8)
  - Ocular hyperaemia [None]
  - Loss of consciousness [None]
  - Pruritus [None]
  - Dyspnoea [None]
  - Flushing [None]
  - Tremor [None]
  - Back pain [None]
  - Erythema [None]

NARRATIVE: CASE EVENT DATE: 20210119
